FAERS Safety Report 6597743-0 (Version None)
Quarter: 2010Q1

REPORT INFORMATION
  Report Type: 
  Country: None (occurrence: None)
  Receive Date: 20100216
  Receipt Date: 20100125
  Transmission Date: 20100710
  Serious: No
  Sender: FDA-Public Use
  Company Number: SPI200700616

PATIENT
  Age: 42 Year
  Sex: Female
  Weight: 60.8 kg

DRUGS (17)
  1. AMITIZA [Suspect]
     Indication: CONSTIPATION
     Dosage: 24 MCG, BID, ORAL, 8 MCG, QD (IN THE MORNING), ORAL, 24 MCG, QD (AT NIGHT), ORAL
     Route: 048
     Dates: start: 20060101, end: 20060101
  2. AMITIZA [Suspect]
     Indication: CONSTIPATION
     Dosage: 24 MCG, BID, ORAL, 8 MCG, QD (IN THE MORNING), ORAL, 24 MCG, QD (AT NIGHT), ORAL
     Route: 048
     Dates: start: 20091101
  3. AMITIZA [Suspect]
     Indication: CONSTIPATION
     Dosage: 24 MCG, BID, ORAL, 8 MCG, QD (IN THE MORNING), ORAL, 24 MCG, QD (AT NIGHT), ORAL
     Route: 048
     Dates: start: 20091101
  4. REGLAN [Concomitant]
  5. PRILOSEC [Concomitant]
  6. DROSPIRENONE W/ETHINYLESTRADIOL (DROSPIRENONE, ETHINYLESTRADIOL) [Concomitant]
  7. ASPIRIN [Concomitant]
  8. PROBIOTICA (LACTOBACILLUS REUTERI) [Concomitant]
  9. CYANOCOBALAMIN [Concomitant]
  10. PREVACID [Concomitant]
  11. VITAMIN D [Concomitant]
  12. MAGNESIUM (MAGNESIUM HYDROXIDE) [Concomitant]
  13. LAXATIVES [Concomitant]
  14. MAGNESIUM OXIDE (MAGNESIUM OXIDE) [Concomitant]
  15. MIRALAX [Concomitant]
  16. SENNA (SENNA ALEXANDRINA) [Concomitant]
  17. LACTULOSE [Concomitant]

REACTIONS (13)
  - ARTHRALGIA [None]
  - ARTHRITIS [None]
  - CONDITION AGGRAVATED [None]
  - DIZZINESS [None]
  - DRUG EFFECT DECREASED [None]
  - DRY MOUTH [None]
  - DYSPNOEA [None]
  - FATIGUE [None]
  - FEELING ABNORMAL [None]
  - INSOMNIA [None]
  - POLYDIPSIA [None]
  - VITAMIN B COMPLEX DEFICIENCY [None]
  - VITAMIN D DEFICIENCY [None]
